FAERS Safety Report 5289786-4 (Version None)
Quarter: 2007Q2

REPORT INFORMATION
  Report Type: 
  Country: None (occurrence: None)
  Receive Date: 20070406
  Receipt Date: 20070330
  Transmission Date: 20071010
  Serious: Yes (Hospitalization)
  Sender: FDA-Public Use
  Company Number: JP-PFIZER INC-2007019451

PATIENT
  Sex: Female
  Weight: 63 kg

DRUGS (14)
  1. JZOLOFT [Suspect]
     Indication: SUICIDE ATTEMPT
     Route: 048
  2. HALCION [Suspect]
     Indication: ANXIETY
     Route: 048
  3. HALCION [Suspect]
     Indication: DEPRESSION
  4. LUVOX [Suspect]
     Indication: ANXIETY
     Dosage: DAILY DOSE:75MG
     Route: 048
  5. LUVOX [Suspect]
     Indication: DEPRESSION
  6. LEXOTAN [Suspect]
     Indication: ANXIETY
     Dosage: DAILY DOSE:10MG
     Route: 048
  7. LEXOTAN [Suspect]
     Indication: DEPRESSION
  8. DOGMATYL [Suspect]
     Indication: ANXIETY
     Dosage: DAILY DOSE:50MG
     Route: 048
  9. DOGMATYL [Suspect]
     Indication: DEPRESSION
  10. VEGETAMIN B [Suspect]
     Indication: ANXIETY
     Route: 048
  11. VEGETAMIN B [Suspect]
     Indication: DEPRESSION
  12. DORAL [Concomitant]
     Route: 048
  13. RISPERDAL [Concomitant]
     Route: 048
  14. IPECAC TAB [Concomitant]
     Route: 048

REACTIONS (4)
  - DEPRESSED LEVEL OF CONSCIOUSNESS [None]
  - OVERDOSE [None]
  - SUICIDE ATTEMPT [None]
  - VOMITING [None]
